FAERS Safety Report 23614693 (Version 3)
Quarter: 2024Q2

REPORT INFORMATION
  Report Type: Report from Study
  Country: US (occurrence: US)
  Receive Date: 20240311
  Receipt Date: 20240514
  Transmission Date: 20240715
  Serious: Yes (Hospitalization)
  Sender: FDA-Public Use
  Company Number: US-BoehringerIngelheim-2023-BI-266903

PATIENT
  Sex: Male

DRUGS (1)
  1. OFEV [Suspect]
     Active Substance: NINTEDANIB
     Indication: Idiopathic pulmonary fibrosis
     Route: 048
     Dates: end: 20240506

REACTIONS (24)
  - Prostatic operation [Unknown]
  - Prostatic haemorrhage [Unknown]
  - Diarrhoea [Not Recovered/Not Resolved]
  - Cough [Unknown]
  - Wheezing [Unknown]
  - Dyspnoea exertional [Unknown]
  - Depression [Unknown]
  - Fatigue [Unknown]
  - Decreased appetite [Unknown]
  - Prostatomegaly [Not Recovered/Not Resolved]
  - Joint injury [Not Recovered/Not Resolved]
  - Flushing [Not Recovered/Not Resolved]
  - Peptic ulcer [Recovered/Resolved]
  - Gastric pH decreased [Unknown]
  - Benign oesophageal neoplasm [Unknown]
  - Pneumonia [Unknown]
  - Aspiration [Unknown]
  - Weight decreased [Unknown]
  - Hypotension [Unknown]
  - Viral infection [Unknown]
  - Abdominal discomfort [Unknown]
  - Pyrexia [Not Recovered/Not Resolved]
  - Abdominal pain upper [Unknown]
  - Loss of consciousness [Unknown]
